FAERS Safety Report 4773265-4 (Version None)
Quarter: 2005Q3

REPORT INFORMATION
  Report Type: 
  Country: None (occurrence: None)
  Receive Date: 20050916
  Receipt Date: 20050908
  Transmission Date: 20060218
  Serious: Yes (Other)
  Sender: FDA-Public Use
  Company Number: 2005-09-0564

PATIENT
  Sex: Female

DRUGS (4)
  1. REBETOL [Suspect]
     Indication: HEPATITIS B
     Dosage: BID ORAL
     Route: 048
     Dates: start: 20030301, end: 20030801
  2. REBETOL [Suspect]
     Indication: HEPATITIS C
     Dosage: BID ORAL
     Route: 048
     Dates: start: 20030301, end: 20030801
  3. INTRON A [Suspect]
     Indication: HEPATITIS B
     Dosage: QWK
     Dates: start: 20030301, end: 20030801
  4. INTRON A [Suspect]
     Indication: HEPATITIS C
     Dosage: QWK
     Dates: start: 20030301, end: 20030801

REACTIONS (4)
  - BRAIN MASS [None]
  - HEADACHE [None]
  - RED BLOOD CELL COUNT DECREASED [None]
  - WHITE BLOOD CELL COUNT DECREASED [None]
